FAERS Safety Report 7036176-X (Version None)
Quarter: 2010Q4

REPORT INFORMATION
  Report Type: 
  Country: None (occurrence: None)
  Receive Date: 20101008
  Receipt Date: 20100615
  Transmission Date: 20110411
  Serious: No
  Sender: FDA-Public Use
  Company Number: US-BRISTOL-MYERS SQUIBB COMPANY-15155633

PATIENT
  Sex: Male

DRUGS (2)
  1. AVAPRO [Suspect]
  2. PLAVIX [Concomitant]

REACTIONS (1)
  - DYSGEUSIA [None]
